FAERS Safety Report 17101964 (Version 18)
Quarter: 2020Q1

REPORT INFORMATION
  Report Type: Report from Study
  Country: TR (occurrence: TR)
  Receive Date: 20191202
  Receipt Date: 20200206
  Transmission Date: 20200409
  Serious: Yes (Death, Life-Threatening, Hospitalization)
  Sender: FDA-Public Use
  Company Number: TR-EISAI MEDICAL RESEARCH-EC-2019-066167

PATIENT
  Age: 55 Year
  Sex: Male
  Weight: 56 kg

DRUGS (8)
  1. PLACEBO [Suspect]
     Active Substance: UNSPECIFIED INGREDIENT
     Route: 041
     Dates: start: 20191204, end: 20191204
  2. LENVATINIB [Suspect]
     Active Substance: LENVATINIB
     Indication: HEPATOCELLULAR CARCINOMA
     Route: 048
     Dates: start: 20191105, end: 20191125
  3. THYROMAZOL [Concomitant]
     Dates: start: 20191104
  4. LENVATINIB [Suspect]
     Active Substance: LENVATINIB
     Route: 048
     Dates: start: 20191203, end: 20191207
  5. BARACLUDE [Concomitant]
     Active Substance: ENTECAVIR
     Dates: start: 200801
  6. GERALGINE PLUS [Concomitant]
     Dates: start: 20191009
  7. PLACEBO [Suspect]
     Active Substance: UNSPECIFIED INGREDIENT
     Indication: HEPATOCELLULAR CARCINOMA
     Route: 041
     Dates: start: 20191105, end: 20191105
  8. ARVELES [Concomitant]
     Active Substance: DEXKETOPROFEN
     Dates: start: 20191009

REACTIONS (3)
  - Gastric haemorrhage [Not Recovered/Not Resolved]
  - Myocardial infarction [Recovered/Resolved]
  - Upper gastrointestinal haemorrhage [Recovered/Resolved]

NARRATIVE: CASE EVENT DATE: 20191125
